FAERS Safety Report 9836029 (Version 2)
Quarter: 2014Q1

REPORT INFORMATION
  Report Type: Spontaneous
  Country: US (occurrence: US)
  Receive Date: 20140122
  Receipt Date: 20140207
  Transmission Date: 20141002
  Serious: No
  Sender: FDA-Public Use
  Company Number: US-009507513-1401USA008964

PATIENT
  Sex: Female

DRUGS (1)
  1. EMEND FOR INJECTION [Suspect]
     Indication: THERAPEUTIC EMESIS
     Dosage: 150 MG DILUTED IN A 150 ML BAG OF NORMAL SALINE SOLUTION
     Route: 042

REACTIONS (2)
  - Infusion site reaction [Unknown]
  - Wrong technique in drug usage process [Unknown]
